FAERS Safety Report 16601869 (Version 1)
Quarter: 2019Q3

REPORT INFORMATION
  Report Type: Report from Study
  Country: JP (occurrence: JP)
  Receive Date: 20190719
  Receipt Date: 20190719
  Transmission Date: 20191004
  Serious: Yes (Hospitalization)
  Sender: FDA-Public Use
  Company Number: JP-B.I. PHARMACEUTICALS,INC./RIDGEFIELD-2019-NB-003329

PATIENT
  Age: 78 Year
  Sex: Female
  Weight: 47.6 kg

DRUGS (5)
  1. AFATINIB [Suspect]
     Active Substance: AFATINIB
     Route: 048
     Dates: start: 20190408, end: 20190507
  2. NORVASC [Concomitant]
     Active Substance: AMLODIPINE BESYLATE
     Indication: PRODUCT USED FOR UNKNOWN INDICATION
     Route: 048
  3. AFATINIB [Suspect]
     Active Substance: AFATINIB
     Indication: LUNG ADENOCARCINOMA
     Route: 048
     Dates: start: 20160930, end: 20161121
  4. LOTRIGA [Concomitant]
     Active Substance: OMEGA-3-ACID ETHYL ESTERS
     Indication: PRODUCT USED FOR UNKNOWN INDICATION
     Route: 048
  5. AFATINIB [Suspect]
     Active Substance: AFATINIB
     Route: 048
     Dates: start: 20161129, end: 20190402

REACTIONS (4)
  - Paronychia [Unknown]
  - Oedema peripheral [Recovering/Resolving]
  - Diarrhoea [Unknown]
  - Decreased appetite [Recovering/Resolving]

NARRATIVE: CASE EVENT DATE: 20190507
